FAERS Safety Report 10855621 (Version 1)
Quarter: 2015Q1

REPORT INFORMATION
  Report Type: Spontaneous
  Country: US (occurrence: None)
  Receive Date: 20150218
  Receipt Date: 20150218
  Transmission Date: 20150721
  Serious: Yes (Death)
  Sender: FDA-Public Use
  Company Number: None

PATIENT
  Age: 37 Year
  Sex: Male
  Weight: 86 kg

DRUGS (2)
  1. HEPARIN [Suspect]
     Active Substance: HEPARIN SODIUM
     Indication: CAROTID ARTERY DISSECTION
     Dosage: 25,000/250 CC TITRATED INTRAVENOUS
     Route: 042
     Dates: start: 20150106, end: 20150107
  2. HEPARIN [Suspect]
     Active Substance: HEPARIN SODIUM
     Indication: INJURY
     Dosage: 25,000/250 CC TITRATED INTRAVENOUS
     Route: 042
     Dates: start: 20150106, end: 20150107

REACTIONS (6)
  - Haematoma [None]
  - Otorrhoea [None]
  - Mydriasis [None]
  - Brain oedema [None]
  - Cerebral infarction [None]
  - Haemorrhage intracranial [None]

NARRATIVE: CASE EVENT DATE: 20150107
